FAERS Safety Report 7656702-7 (Version None)
Quarter: 2011Q3

REPORT INFORMATION
  Report Type: 
  Country: None (occurrence: None)
  Receive Date: 20110801
  Receipt Date: 20110720
  Transmission Date: 20111222
  Serious: Yes (Other)
  Sender: FDA-Public Use
  Company Number: 2011SP033930

PATIENT
  Age: 34 Year
  Sex: Male
  Weight: 84 kg

DRUGS (5)
  1. DEXAMETHASONE [Suspect]
     Indication: PRODUCT USED FOR UNKNOWN INDICATION
     Dosage: 1 DF; IV
     Route: 042
     Dates: start: 20110512, end: 20110517
  2. KETOPROFEN [Suspect]
     Indication: BACK PAIN
     Dosage: 100 MG, QD, IV
     Route: 042
     Dates: start: 20110512, end: 20110517
  3. VOLTAREN FORTE (DICLOFENAC SODIUM) [Concomitant]
     Indication: BACK PAIN
     Dosage: 50 MG, TID, PO
     Route: 048
     Dates: start: 20110517, end: 20110520
  4. KETOPROFEN [Suspect]
     Indication: BACK PAIN
     Dosage: 50 MG, BID, PO
     Route: 048
     Dates: start: 20110512, end: 20110516
  5. DIAZEPAM [Concomitant]

REACTIONS (3)
  - ALLERGIC COLITIS [None]
  - DRUG INTERACTION [None]
  - GASTROINTESTINAL INFLAMMATION [None]
